FAERS Safety Report 15041384 (Version 1)
Quarter: 2018Q2

REPORT INFORMATION
  Report Type: Spontaneous
  Country: US (occurrence: US)
  Receive Date: 20180621
  Receipt Date: 20180621
  Transmission Date: 20180711
  Serious: Yes (Other)
  Sender: FDA-Public Use
  Company Number: US-VISTAPHARM, INC.-VER201806-000700

PATIENT
  Age: 12 Year
  Sex: Male

DRUGS (5)
  1. TRIAMCINOLONE [Concomitant]
     Active Substance: TRIAMCINOLONE
     Indication: DERMATITIS ATOPIC
     Dosage: ON AFFECTED AREAS TWICE A WEEK
  2. PREDNISOLONE. [Suspect]
     Active Substance: PREDNISOLONE
     Dosage: 15MG/5ML A SPOONFUL TWO TO THREE TIMES PER WEEK FOR THE PAST 6 YEARS
     Route: 048
  3. MOMETASONE [Concomitant]
     Active Substance: MOMETASONE
     Indication: DERMATITIS ATOPIC
     Dosage: 15 MG/ML
  4. HYDROCORTISONE. [Concomitant]
     Active Substance: HYDROCORTISONE
     Indication: ILL-DEFINED DISORDER
     Dosage: 10 MG/ME2/DAY  WITH A SLOW TAPER OVER 2 TO 3 MONTHS
  5. PIMECROLIMUS [Concomitant]
     Active Substance: PIMECROLIMUS
     Indication: DERMATITIS ATOPIC
     Dosage: UNKNOWN

REACTIONS (3)
  - Hepatotoxicity [Recovering/Resolving]
  - Insulin resistance [Unknown]
  - Adrenal suppression [Unknown]
